FAERS Safety Report 7581161-2 (Version None)
Quarter: 2011Q2

REPORT INFORMATION
  Report Type: 
  Country: None (occurrence: None)
  Receive Date: 20110629
  Receipt Date: 20110624
  Transmission Date: 20111010
  Serious: Yes (Other)
  Sender: FDA-Public Use
  Company Number: JP-PFIZER INC-2011138824

PATIENT
  Age: 54 Year
  Sex: Female

DRUGS (7)
  1. EURODIN [Concomitant]
     Dosage: UNK
  2. BIOFERMIN [Concomitant]
     Dosage: UNK
  3. NEUROVITAN [Concomitant]
     Dosage: UNK
  4. SELBEX [Concomitant]
     Dosage: UNK
  5. LYRICA [Suspect]
     Indication: PAIN
     Dosage: 75 MG, 1X/DAY
     Route: 048
     Dates: start: 20110621
  6. ALPRAZOLAM [Concomitant]
     Dosage: UNK
  7. ZOMIG [Concomitant]
     Dosage: UNK

REACTIONS (2)
  - GAIT DISTURBANCE [None]
  - NAUSEA [None]
